FAERS Safety Report 8392748 (Version 2)
Quarter: 2014Q2

REPORT INFORMATION
  Report Type: Spontaneous
  Country: US (occurrence: US)
  Receive Date: 20120206
  Receipt Date: 20140610
  Transmission Date: 20141212
  Serious: Yes (Other)
  Sender: FDA-Public Use
  Company Number: US-ASTRAZENECA-2012SE05802

PATIENT
  Age: 69 Year
  Sex: Female

DRUGS (2)
  1. NEXIUM [Suspect]
     Indication: GASTROOESOPHAGEAL REFLUX DISEASE
     Dosage: 40 MG DAILY, 6 TO 8 YEARS AGO
     Route: 048
  2. OTHER MEDICATIONS [Concomitant]

REACTIONS (36)
  - Choking [Unknown]
  - Ligament sprain [Unknown]
  - Fall [Unknown]
  - Dehydration [Unknown]
  - Dysphonia [Unknown]
  - Gastrointestinal sounds abnormal [Unknown]
  - Asthenia [Unknown]
  - Dyspepsia [Unknown]
  - Dysphagia [Unknown]
  - Abdominal distension [Unknown]
  - Irritable bowel syndrome [Unknown]
  - Blood pressure increased [Unknown]
  - Abdominal distension [Unknown]
  - Hiccups [Unknown]
  - Peripheral swelling [Unknown]
  - Eating disorder [Unknown]
  - Muscle spasms [Unknown]
  - Laryngitis [Unknown]
  - Peristalsis visible [Unknown]
  - Increased viscosity of nasal secretion [Unknown]
  - Fatigue [Unknown]
  - Nausea [Unknown]
  - Frequent bowel movements [Unknown]
  - Headache [Unknown]
  - Eructation [Unknown]
  - Dysgeusia [Unknown]
  - Retching [Unknown]
  - Flatulence [Unknown]
  - Dysgeusia [Unknown]
  - Dizziness [Unknown]
  - Flatulence [Unknown]
  - Vomiting [Unknown]
  - Abdominal pain [Unknown]
  - Alopecia [Unknown]
  - Rash [Unknown]
  - Dysgeusia [Unknown]
